FAERS Safety Report 6528290-X (Version None)
Quarter: 2010Q1

REPORT INFORMATION
  Report Type: 
  Country: None (occurrence: None)
  Receive Date: 20100106
  Receipt Date: 20091224
  Transmission Date: 20100710
  Serious: Yes (Other)
  Sender: FDA-Public Use
  Company Number: PHHY2009JP59004

PATIENT

DRUGS (1)
  1. EXJADE [Suspect]
     Dosage: 1000 MG/DAY
     Route: 048

REACTIONS (4)
  - HAEMATEMESIS [None]
  - OESOPHAGEAL ULCER [None]
  - OROPHARYNGEAL PAIN [None]
  - WRONG TECHNIQUE IN DRUG USAGE PROCESS [None]
